FAERS Safety Report 25838547 (Version 2)
Quarter: 2025Q4

REPORT INFORMATION
  Report Type: Report from Study
  Country: EU (occurrence: EU)
  Receive Date: 20250923
  Receipt Date: 20251126
  Transmission Date: 20260118
  Serious: Yes (Death, Other)
  Sender: ABBVIE
  Company Number: EU-ABBVIE-5961917

PATIENT
  Age: 76 Year
  Sex: Male

DRUGS (2)
  1. FOSCARBIDOPA\FOSLEVODOPA [Suspect]
     Active Substance: FOSCARBIDOPA\FOSLEVODOPA
     Indication: Parkinson^s disease
     Dosage: CRN: 0.26 ML/H; CR: 0.40 ML/H; CRH: 0.46 ML/H; ED: 0.30 ML
     Route: 058
     Dates: start: 20240722
  2. FOSCARBIDOPA\FOSLEVODOPA [Suspect]
     Active Substance: FOSCARBIDOPA\FOSLEVODOPA
     Dosage: SD: 0.40ML, CRN: 0.29ML/H, CR: 0.40ML/H, CRH: 0.46ML/H, ED: 0.20ML
     Route: 058

REACTIONS (12)
  - Death [Fatal]
  - Hallucination [Not Recovered/Not Resolved]
  - Cystitis [Not Recovered/Not Resolved]
  - General physical health deterioration [Not Recovered/Not Resolved]
  - Unresponsive to stimuli [Recovered/Resolved]
  - Derealisation [Not Recovered/Not Resolved]
  - Device loosening [Unknown]
  - Tremor [Recovered/Resolved]
  - Fluid intake reduced [Unknown]
  - Dysphagia [Unknown]
  - Feeding disorder [Unknown]
  - Muscle spasms [Unknown]

NARRATIVE: CASE EVENT DATE: 20240101
